FAERS Safety Report 16115010 (Version 2)
Quarter: 2019Q2

REPORT INFORMATION
  Report Type: Spontaneous
  Country: FR (occurrence: FR)
  Receive Date: 20190325
  Receipt Date: 20190606
  Transmission Date: 20190711
  Serious: Yes (Hospitalization)
  Sender: FDA-Public Use
  Company Number: FR-ROCHE-2286109

PATIENT
  Age: 36 Year
  Sex: Male

DRUGS (4)
  1. TERCIAN [CYAMEMAZINE] [Interacting]
     Active Substance: CYAMEMAZINE
     Indication: ANXIETY
     Dosage: UNIT DOSE: 375 [DRP]?40 MG/ML
     Route: 048
     Dates: start: 20181212, end: 20181224
  2. VALIUM [Suspect]
     Active Substance: DIAZEPAM
     Indication: ANXIETY
     Dosage: UNIT DOSE: 150 [DRP]
     Route: 048
     Dates: start: 20181214, end: 20181224
  3. EFFEXOR [Interacting]
     Active Substance: VENLAFAXINE HYDROCHLORIDE
     Indication: PRODUCT USED FOR UNKNOWN INDICATION
     Route: 048
     Dates: start: 20181224
  4. BUPRENORPHINE. [Interacting]
     Active Substance: BUPRENORPHINE
     Indication: PRODUCT SUBSTITUTION
     Route: 048
     Dates: start: 20181222, end: 20181224

REACTIONS (3)
  - Accidental overdose [Unknown]
  - Respiratory distress [Recovered/Resolved]
  - Drug interaction [Unknown]

NARRATIVE: CASE EVENT DATE: 20181224
